FAERS Safety Report 8222029-8 (Version None)
Quarter: 2012Q1

REPORT INFORMATION
  Report Type: 
  Country: None (occurrence: None)
  Receive Date: 20120320
  Receipt Date: 20120305
  Transmission Date: 20120608
  Serious: Yes (Hospitalization)
  Sender: FDA-Public Use
  Company Number: US-JUTA GMBH-2012-04540

PATIENT
  Age: 7 Year
  Sex: Male

DRUGS (1)
  1. DILTIAZEM HYDROCHLORIDE [Suspect]
     Indication: ACCIDENTAL DRUG INTAKE BY CHILD
     Dosage: UNK
     Route: 065

REACTIONS (13)
  - HYPERGLYCAEMIA [None]
  - VOMITING [None]
  - CONVULSION [None]
  - METABOLIC ACIDOSIS [None]
  - ACCIDENTAL EXPOSURE [None]
  - BRADYCARDIA [None]
  - HYPOTENSION [None]
  - MENTAL STATUS CHANGES [None]
  - FATIGUE [None]
  - SLUGGISHNESS [None]
  - CONFUSIONAL STATE [None]
  - RENAL FAILURE ACUTE [None]
  - SHOCK [None]
